FAERS Safety Report 5494044-9 (Version None)
Quarter: 2007Q4

REPORT INFORMATION
  Report Type: 
  Country: None (occurrence: None)
  Receive Date: 20071023
  Receipt Date: 20071011
  Transmission Date: 20080405
  Serious: Yes (Other)
  Sender: FDA-Public Use
  Company Number: US-PFIZER INC-2007085778

PATIENT
  Sex: Male
  Weight: 56.818 kg

DRUGS (2)
  1. CHANTIX [Suspect]
     Indication: SMOKING CESSATION THERAPY
  2. LEXAPRO [Concomitant]

REACTIONS (6)
  - ANOREXIA [None]
  - ASTHENIA [None]
  - FEELING ABNORMAL [None]
  - HERNIA REPAIR [None]
  - NAUSEA [None]
  - SLEEP DISORDER [None]
